FAERS Safety Report 11151511 (Version 2)
Quarter: 2015Q2

REPORT INFORMATION
  Report Type: Report from Study
  Country: US (occurrence: US)
  Receive Date: 20150601
  Receipt Date: 20150623
  Transmission Date: 20150821
  Serious: Yes (Other)
  Sender: FDA-Public Use
  Company Number: US-BIOGENIDEC-2015BI055612

PATIENT
  Age: 60 Year
  Sex: Female
  Weight: 65 kg

DRUGS (9)
  1. TOPROL XL [Concomitant]
     Active Substance: METOPROLOL SUCCINATE
  2. VITAMIN D [Concomitant]
     Active Substance: CHOLECALCIFEROL
  3. DEXILANT [Concomitant]
     Active Substance: DEXLANSOPRAZOLE
     Route: 048
  4. CLOPIDOGREL [Concomitant]
     Active Substance: CLOPIDOGREL BISULFATE
     Route: 048
  5. XOPENEX HFA [Concomitant]
     Active Substance: LEVALBUTEROL TARTRATE
  6. TRIAM/HCTZ [Concomitant]
  7. TECFIDERA [Suspect]
     Active Substance: DIMETHYL FUMARATE
     Indication: MULTIPLE SCLEROSIS
     Route: 048
     Dates: start: 201311
  8. FLONASE [Concomitant]
     Active Substance: FLUTICASONE PROPIONATE
  9. BYSTOLIC [Concomitant]
     Active Substance: NEBIVOLOL HYDROCHLORIDE

REACTIONS (6)
  - Gastrooesophageal reflux disease [Unknown]
  - Breast pain [Unknown]
  - Fibrocystic breast disease [Unknown]
  - Abdominal pain [Recovered/Resolved]
  - Breast reconstruction [Unknown]
  - Flushing [Unknown]

NARRATIVE: CASE EVENT DATE: 201311
